FAERS Safety Report 8804015 (Version 1)
Quarter: 2012Q4

REPORT INFORMATION
  Report Type: Report from Study
  Country: US (occurrence: US)
  Receive Date: 20120924
  Receipt Date: 20120924
  Transmission Date: 20130627
  Serious: Yes (Other)
  Sender: FDA-Public Use
  Company Number: US-BAYER-2012-095993

PATIENT
  Sex: Male

DRUGS (1)
  1. CIPROFLOXACIN MONOHYDROCHLORIDE [Suspect]
     Indication: ANTIBIOTIC PROPHYLAXIS
     Dosage: 500 mg, BID, starting the evening before procedure, drug stopped after four of the six total doses
     Route: 048

REACTIONS (2)
  - Urinary tract infection [Recovered/Resolved]
  - Pathogen resistance [None]
